FAERS Safety Report 4707143-3 (Version None)
Quarter: 2005Q3

REPORT INFORMATION
  Report Type: 
  Country: None (occurrence: None)
  Receive Date: 20050701
  Receipt Date: 20050616
  Transmission Date: 20060218
  Serious: Yes (Hospitalization)
  Sender: FDA-Public Use
  Company Number: 2005EU001326

PATIENT
  Age: 52 Year
  Sex: Female

DRUGS (1)
  1. FK506 (TACROLIMUS CAPSULES) CAPSULE [Suspect]
     Indication: RENAL TRANSPLANT
     Dosage: 2.00 MG, TID, ORAL
     Route: 048
     Dates: start: 20040809

REACTIONS (10)
  - ADRENAL MASS [None]
  - ASCITES [None]
  - DRUG TOXICITY [None]
  - HYDRONEPHROSIS [None]
  - KIDNEY TRANSPLANT REJECTION [None]
  - PERIRENAL HAEMATOMA [None]
  - PLEURAL EFFUSION [None]
  - PNEUMONIA [None]
  - POST PROCEDURAL URINE LEAK [None]
  - URETERIC STENOSIS [None]
